FAERS Safety Report 8598744-3 (Version None)
Quarter: 2012Q3

REPORT INFORMATION
  Report Type: 
  Country: None (occurrence: None)
  Receive Date: 20120816
  Receipt Date: 19931111
  Transmission Date: 20120928
  Serious: Yes (Other)
  Sender: FDA-Public Use
  Company Number: US-ROCHE-1100897

PATIENT
  Sex: Male

DRUGS (7)
  1. TRIDIL [Concomitant]
     Dosage: PER MINUTE
  2. HEPARIN [Concomitant]
     Dosage: 1000 UNITS
  3. ACTIVASE [Suspect]
     Indication: ACUTE MYOCARDIAL INFARCTION
     Route: 042
  4. HEPARIN [Concomitant]
     Dosage: 5000 UNITS
  5. MORPHINE [Concomitant]
     Route: 042
  6. TRIDIL [Concomitant]
     Dosage: PER MIN
  7. TRIDIL [Concomitant]
     Dosage: 50 MG IN 250 UNITS

REACTIONS (4)
  - HEART RATE DECREASED [None]
  - CHEST DISCOMFORT [None]
  - NAUSEA [None]
  - DYSPNOEA [None]
